FAERS Safety Report 6393096-1 (Version None)
Quarter: 2009Q4

REPORT INFORMATION
  Report Type: 
  Country: None (occurrence: None)
  Receive Date: 20091008
  Receipt Date: 20090923
  Transmission Date: 20100525
  Serious: Yes (Hospitalization, Other)
  Sender: FDA-Public Use
  Company Number: EE-ROCHE-658503

PATIENT
  Sex: Female
  Weight: 58 kg

DRUGS (3)
  1. PEGASYS [Suspect]
     Route: 058
     Dates: start: 20090312, end: 20090731
  2. PROPYL-THIOURACIL [Suspect]
     Route: 048
     Dates: start: 20090618, end: 20090813
  3. COPEGUS [Concomitant]
     Route: 048
     Dates: start: 20090312, end: 20090813

REACTIONS (4)
  - HYPERTHYROIDISM [None]
  - NEUTROPENIA [None]
  - OROPHARYNGEAL PAIN [None]
  - PYREXIA [None]
